FAERS Safety Report 12556748 (Version 1)
Quarter: 2016Q3

REPORT INFORMATION
  Report Type: Spontaneous
  Country: CN (occurrence: CN)
  Receive Date: 20160714
  Receipt Date: 20160714
  Transmission Date: 20161109
  Serious: Yes (Disabling)
  Sender: FDA-Public Use
  Company Number: CN-PFIZER INC-2016339454

PATIENT
  Age: 57 Year
  Sex: Male
  Weight: 64.7 kg

DRUGS (6)
  1. MEDROL [Suspect]
     Active Substance: METHYLPREDNISOLONE
     Dosage: 36 MG, 1X/DAY
     Dates: start: 20150409
  2. MEDROL [Suspect]
     Active Substance: METHYLPREDNISOLONE
     Dosage: 20 MG, 1X/DAY
     Dates: start: 201507
  3. MEDROL [Suspect]
     Active Substance: METHYLPREDNISOLONE
     Indication: DRUG THERAPY
     Dosage: 12 MG, 2X/DAY (1 EVERY 12 HOURS)
     Dates: start: 201503
  4. MEDROL [Suspect]
     Active Substance: METHYLPREDNISOLONE
     Dosage: 36 MG, 1X/DAY
     Route: 048
     Dates: start: 20150301, end: 20160318
  5. MEDROL [Suspect]
     Active Substance: METHYLPREDNISOLONE
     Dosage: 8 MG, 1X/DAY
  6. MEDROL [Suspect]
     Active Substance: METHYLPREDNISOLONE
     Dosage: 8 MG, 1X/DAY

REACTIONS (3)
  - Cushing^s syndrome [Recovering/Resolving]
  - Glycosylated haemoglobin increased [Recovering/Resolving]
  - Bone density abnormal [Recovering/Resolving]

NARRATIVE: CASE EVENT DATE: 20150908
